FAERS Safety Report 9205709 (Version 1)
Quarter: 2013Q2

REPORT INFORMATION
  Report Type: Spontaneous
  Country: US (occurrence: US)
  Receive Date: 20130403
  Receipt Date: 20130403
  Transmission Date: 20140414
  Serious: Yes (Other)
  Sender: FDA-Public Use
  Company Number: US-PFIZER INC-2013100317

PATIENT
  Age: 31 Year
  Sex: Male

DRUGS (2)
  1. AZITHROMYCIN [Suspect]
     Dosage: 250 MG, 2X/DAY THE FIRST DAY
  2. AZITHROMYCIN [Suspect]
     Dosage: 250 MG, 1X/DAY FOR FOUR DAYS

REACTIONS (10)
  - Haematochezia [Unknown]
  - Dizziness [Unknown]
  - Abdominal pain [Unknown]
  - Renal pain [Unknown]
  - Abdominal distension [Unknown]
  - Anxiety [Unknown]
  - Panic attack [Unknown]
  - Arrhythmia [Unknown]
  - Syncope [Unknown]
  - Emotional disorder [Unknown]
